FAERS Safety Report 23638521 (Version 1)
Quarter: 2024Q1

REPORT INFORMATION
  Report Type: Spontaneous
  Country: FR (occurrence: FR)
  Receive Date: 20240315
  Receipt Date: 20240315
  Transmission Date: 20240410
  Serious: Yes (Hospitalization, Other)
  Sender: FDA-Public Use
  Company Number: FR-AFSSAPS-AN2023001577

PATIENT
  Age: 61 Year
  Sex: Female
  Weight: 74 kg

DRUGS (9)
  1. AMOXICILLIN [Suspect]
     Active Substance: AMOXICILLIN
     Indication: Urinary tract infection
     Dosage: 3 GRAM, DAILY
     Route: 048
     Dates: start: 20231108, end: 20231112
  2. ACETAMINOPHEN [Suspect]
     Active Substance: ACETAMINOPHEN
     Indication: Pain
     Dosage: 1 GRAM, DAILY
     Route: 048
     Dates: start: 20231110, end: 20231117
  3. HYDROXYUREA [Suspect]
     Active Substance: HYDROXYUREA
     Indication: Philadelphia positive chronic myeloid leukaemia
     Dosage: 1500 MILLIGRAM, DAILY
     Route: 048
     Dates: start: 20231112, end: 20231115
  4. CLAVULANIC ACID [Suspect]
     Active Substance: CLAVULANIC ACID
     Indication: Urinary tract infection
     Dosage: 375 MILLIGRAM, DAILY
     Route: 048
     Dates: start: 20231108, end: 20231112
  5. IVERMECTIN [Suspect]
     Active Substance: IVERMECTIN
     Indication: Prophylaxis
     Dosage: 15 MILLIGRAM, IN TOTAL
     Route: 048
     Dates: start: 20231108, end: 20231108
  6. PIPERACILLIN SODIUM\TAZOBACTAM SODIUM [Suspect]
     Active Substance: PIPERACILLIN SODIUM\TAZOBACTAM SODIUM
     Indication: Urinary tract infection
     Dosage: 16 GRAM, DAILY
     Route: 040
     Dates: start: 20231112, end: 20231120
  7. AZACITIDINE [Concomitant]
     Active Substance: AZACITIDINE
     Indication: Product used for unknown indication
     Dosage: 145 MILLIGRAM, DAILY
     Route: 058
     Dates: start: 20231115, end: 20231122
  8. ENTECAVIR [Concomitant]
     Active Substance: ENTECAVIR
     Indication: Product used for unknown indication
     Dosage: 0.5 MILLIGRAM, DAILY
     Route: 048
     Dates: start: 20231117
  9. ALLOPURINOL [Concomitant]
     Active Substance: ALLOPURINOL
     Indication: Product used for unknown indication
     Dosage: 300 MILLIGRAM, DAILY
     Route: 048
     Dates: start: 20230108

REACTIONS (1)
  - Mixed liver injury [Recovering/Resolving]

NARRATIVE: CASE EVENT DATE: 20231114
